FAERS Safety Report 6147090-6 (Version None)
Quarter: 2009Q2

REPORT INFORMATION
  Report Type: 
  Country: None (occurrence: None)
  Receive Date: 20090407
  Receipt Date: 20090401
  Transmission Date: 20091009
  Serious: Yes (Death)
  Sender: FDA-Public Use
  Company Number: US-GILEAD-2009-0021258

PATIENT
  Sex: Female

DRUGS (17)
  1. LETAIRIS [Suspect]
     Indication: PULMONARY ARTERIAL HYPERTENSION
     Route: 048
     Dates: start: 20080304, end: 20090305
  2. ASPIRIN [Concomitant]
  3. COUMADIN [Concomitant]
  4. AMIODARONE HCL [Concomitant]
  5. FUROSEMIDE [Concomitant]
  6. POTASSIUM CHLORIDE [Concomitant]
  7. ATENOLOL [Concomitant]
  8. SIMVASTATIN [Concomitant]
  9. LEXAPRO [Concomitant]
  10. PROTONIX [Concomitant]
  11. SYNTHROID [Concomitant]
  12. ARICEPT [Concomitant]
  13. NAMENDA [Concomitant]
  14. DETROL LA [Concomitant]
  15. FIBERCON [Concomitant]
  16. MULTI-VITAMINS [Concomitant]
  17. COLACE [Concomitant]

REACTIONS (2)
  - MYOCARDIAL INFARCTION [None]
  - PNEUMONIA ASPIRATION [None]
